FAERS Safety Report 15486714 (Version 1)
Quarter: 2018Q4

REPORT INFORMATION
  Report Type: Report from Study
  Country: RO (occurrence: RO)
  Receive Date: 20181011
  Receipt Date: 20181011
  Transmission Date: 20190205
  Serious: Yes (Other)
  Sender: FDA-Public Use
  Company Number: RO-ROCHE-1993669

PATIENT
  Sex: Female
  Weight: 62 kg

DRUGS (1)
  1. ROACTEMRA [Suspect]
     Active Substance: TOCILIZUMAB
     Indication: RHEUMATOID ARTHRITIS
     Dosage: ONE
     Route: 058
     Dates: start: 201707

REACTIONS (14)
  - Laboratory test abnormal [Recovered/Resolved]
  - Nasopharyngitis [Recovered/Resolved]
  - Contusion [Unknown]
  - Malaise [Unknown]
  - Peripheral swelling [Unknown]
  - Weight increased [Unknown]
  - Tendon rupture [Recovered/Resolved]
  - Finger deformity [Not Recovered/Not Resolved]
  - Finger deformity [Unknown]
  - Joint swelling [Unknown]
  - Asthenia [Not Recovered/Not Resolved]
  - Rheumatoid factor increased [Not Recovered/Not Resolved]
  - Pain [Not Recovered/Not Resolved]
  - C-reactive protein increased [Not Recovered/Not Resolved]
